FAERS Safety Report 7823875-2 (Version None)
Quarter: 2011Q4

REPORT INFORMATION
  Report Type: 
  Country: None (occurrence: None)
  Receive Date: 20111018
  Receipt Date: 20111018
  Transmission Date: 20120403
  Serious: Yes (Hospitalization)
  Sender: FDA-Public Use
  Company Number: None

PATIENT
  Sex: Male
  Weight: 52.72 kg

DRUGS (1)
  1. CISPLATIN [Suspect]
     Dosage: 168 MG

REACTIONS (9)
  - DISEASE PROGRESSION [None]
  - PNEUMOTHORAX [None]
  - ASTHENIA [None]
  - DEHYDRATION [None]
  - RESPIRATORY DISTRESS [None]
  - PRE-EXISTING DISEASE [None]
  - DIARRHOEA [None]
  - PURULENT DISCHARGE [None]
  - PNEUMONIA ASPIRATION [None]
